FAERS Safety Report 4685751-6 (Version None)
Quarter: 2005Q2

REPORT INFORMATION
  Report Type: 
  Country: None (occurrence: None)
  Receive Date: 20050608
  Receipt Date: 20050527
  Transmission Date: 20051028
  Serious: Yes (Hospitalization, Other)
  Sender: FDA-Public Use
  Company Number: KII-2005-0016764

PATIENT
  Age: 47 Year
  Sex: Female

DRUGS (7)
  1. MORPHINE SULFATE [Suspect]
     Dosage: ORAL
     Route: 048
  2. ACETAMINOPHEN AND OXYCODONE HCL [Suspect]
     Dosage: ORAL
     Route: 048
  3. GABAPENTIN [Suspect]
     Dosage: ORAL
     Route: 048
  4. AMPHETAMINE SULFATE TAB [Suspect]
     Dosage: ORAL
     Route: 048
  5. SELECTIVE ESTROGEN RECEPTOR MODULATOR [Suspect]
     Dosage: ORAL
     Route: 048
  6. REMERON [Concomitant]
  7. DOXEPIN HCL [Concomitant]

REACTIONS (11)
  - BLOOD PRESSURE SYSTOLIC INCREASED [None]
  - BOWEL SOUNDS ABNORMAL [None]
  - CONFUSIONAL STATE [None]
  - DEPRESSED LEVEL OF CONSCIOUSNESS [None]
  - DYSARTHRIA [None]
  - ELECTROCARDIOGRAM QRS COMPLEX PROLONGED [None]
  - ELECTROCARDIOGRAM QT CORRECTED INTERVAL PROLONGED [None]
  - MULTIPLE DRUG OVERDOSE [None]
  - NYSTAGMUS [None]
  - PERSEVERATION [None]
  - RESPIRATORY RATE DECREASED [None]
